FAERS Safety Report 22197136 (Version 1)
Quarter: 2023Q2

REPORT INFORMATION
  Report Type: Spontaneous
  Country: US (occurrence: None)
  Receive Date: 20230410
  Receipt Date: 20230410
  Transmission Date: 20230722
  Serious: Yes (Disabling)
  Sender: FDA-Public Use
  Company Number: None

PATIENT
  Age: 95 Year
  Sex: Female
  Weight: 51.8 kg

DRUGS (1)
  1. PEMBROLIZUMAB [Suspect]
     Active Substance: PEMBROLIZUMAB
     Indication: Non-small cell lung cancer
     Dosage: OTHER FREQUENCY : 6 CYCLES;?
     Route: 042

REACTIONS (8)
  - Myasthenic syndrome [None]
  - Dyspnoea [None]
  - Dysphonia [None]
  - Nausea [None]
  - Diarrhoea [None]
  - Spondylolisthesis [None]
  - Diaphragm muscle weakness [None]
  - Spinal osteoarthritis [None]

NARRATIVE: CASE EVENT DATE: 20221230
